FAERS Safety Report 16608098 (Version 1)
Quarter: 2019Q3

REPORT INFORMATION
  Report Type: Spontaneous
  Country: FR (occurrence: FR)
  Receive Date: 20190722
  Receipt Date: 20190722
  Transmission Date: 20191004
  Serious: Yes (Hospitalization)
  Sender: FDA-Public Use
  Company Number: FR-PFIZER INC-2019304502

PATIENT
  Age: 52 Year
  Sex: Female
  Weight: 80 kg

DRUGS (13)
  1. PARACETAMOL [Suspect]
     Active Substance: ACETAMINOPHEN
     Dosage: 34.45 G, SINGLE
     Route: 048
     Dates: start: 20180412, end: 20180412
  2. LUMIRELAX [METHOCARBAMOL] [Suspect]
     Active Substance: METHOCARBAMOL
     Dosage: 10 G, SINGLE
     Route: 048
     Dates: start: 20180412, end: 20180412
  3. INEXIUM [ESOMEPRAZOLE MAGNESIUM] [Suspect]
     Active Substance: ESOMEPRAZOLE MAGNESIUM
     Dosage: 48 MG, SINGLE
     Route: 048
     Dates: start: 20180412, end: 20180412
  4. CLOMIPRAMINE HYDROCHLORIDE. [Suspect]
     Active Substance: CLOMIPRAMINE HYDROCHLORIDE
     Dosage: 2.25 G, SINGLE
     Route: 048
     Dates: start: 20180412, end: 20180412
  5. ALPRAZOLAM. [Suspect]
     Active Substance: ALPRAZOLAM
     Dosage: 15 MG, SINGLE
     Route: 048
     Dates: start: 20180412, end: 20180412
  6. TRANXENE [Suspect]
     Active Substance: CLORAZEPATE DIPOTASSIUM
     Dosage: 310 MG, SINGLE
     Route: 048
     Dates: start: 20180412, end: 20180412
  7. BROMAZEPAM [Suspect]
     Active Substance: BROMAZEPAM
     Dosage: 180 MG, SINGLE
     Route: 048
     Dates: start: 20180412, end: 20180412
  8. ZOPICLONE [Suspect]
     Active Substance: ZOPICLONE
     Dosage: 105 MG, SINGLE
     Route: 048
     Dates: start: 20180412, end: 20180412
  9. FENOFIBRATE. [Suspect]
     Active Substance: FENOFIBRATE
     Dosage: 10 G, SINGLE
     Route: 048
     Dates: start: 20180412, end: 20180412
  10. PERINDOPRIL [Suspect]
     Active Substance: PERINDOPRIL
     Dosage: 48 MG, SINGLE
     Route: 048
     Dates: start: 20180412, end: 20180412
  11. CELEBREX [Suspect]
     Active Substance: CELECOXIB
     Dosage: 1 G, SINGLE
     Route: 048
     Dates: start: 20180412, end: 20180412
  12. IRBESARTAN. [Suspect]
     Active Substance: IRBESARTAN
     Dosage: 1.5 G, SINGLE
     Route: 048
     Dates: start: 20180412, end: 20180412
  13. TRAMADOL. [Suspect]
     Active Substance: TRAMADOL
     Dosage: 3.98 G, SINGLE
     Route: 048
     Dates: start: 20180412, end: 20180412

REACTIONS (10)
  - Suicide attempt [Unknown]
  - Cyanosis [Recovered/Resolved]
  - Shock [Recovered/Resolved]
  - Somnolence [Recovered/Resolved]
  - Coma [Recovered/Resolved]
  - Toxicity to various agents [Recovered/Resolved]
  - Hypoxia [Recovered/Resolved]
  - Hypotension [Recovered/Resolved]
  - Intentional overdose [Unknown]
  - Livedo reticularis [Recovered/Resolved]

NARRATIVE: CASE EVENT DATE: 20180412
